FAERS Safety Report 6722425-1 (Version None)
Quarter: 2010Q2

REPORT INFORMATION
  Report Type: 
  Country: None (occurrence: None)
  Receive Date: 20100512
  Receipt Date: 20100429
  Transmission Date: 20101027
  Serious: Yes (Other)
  Sender: FDA-Public Use
  Company Number: US-BAYER-200943706NA

PATIENT
  Age: 75 Year
  Sex: Male
  Weight: 83 kg

DRUGS (28)
  1. MAGNEVIST [Suspect]
     Indication: NUCLEAR MAGNETIC RESONANCE IMAGING
     Dosage: AS USED: 40 ML
     Route: 042
     Dates: start: 20060710, end: 20060710
  2. MAGNEVIST [Suspect]
     Dosage: AS USED: 60 ML
     Route: 042
     Dates: start: 20060713, end: 20060713
  3. MAGNEVIST [Suspect]
     Dosage: AS USED: 20 ML
     Route: 042
     Dates: start: 20061214, end: 20061214
  4. MAGNEVIST [Suspect]
     Dosage: AS USED: 40 ML
     Route: 042
     Dates: start: 20061219, end: 20061219
  5. MAGNEVIST [Suspect]
     Dosage: AS USED: 40 ML
     Route: 042
     Dates: start: 20061220, end: 20061220
  6. MAGNEVIST [Suspect]
     Route: 042
     Dates: start: 20061224, end: 20061224
  7. OMNISCAN [Suspect]
     Indication: NUCLEAR MAGNETIC RESONANCE IMAGING
  8. OPTIMARK [Suspect]
     Indication: NUCLEAR MAGNETIC RESONANCE IMAGING
  9. MULTIHANCE [Suspect]
     Indication: NUCLEAR MAGNETIC RESONANCE IMAGING
  10. PROHANCE [Suspect]
     Indication: NUCLEAR MAGNETIC RESONANCE IMAGING
  11. UNSPECIFIED GADOLINIUM BASED CONTRAST AGENT [Suspect]
     Indication: NUCLEAR MAGNETIC RESONANCE IMAGING
     Dates: start: 20060706, end: 20060706
  12. UNSPECIFIED GADOLINIUM BASED CONTRAST AGENT [Suspect]
     Dates: start: 20061122, end: 20061122
  13. CALCIUM CARBONATE [Concomitant]
  14. EPOETIN ALFA [Concomitant]
     Indication: ANAEMIA
     Dates: start: 20070101
  15. CELEXA [Concomitant]
  16. CYANOCOBALAMIN [Concomitant]
  17. GABAPENTIN [Concomitant]
  18. M.V.I. [Concomitant]
  19. FOLIC ACID [Concomitant]
  20. LISINOPRIL [Concomitant]
  21. ZESTRIL [Concomitant]
  22. TOPROL-XL [Concomitant]
  23. COUMADIN [Concomitant]
  24. IRON [Concomitant]
  25. ASPIRIN [Concomitant]
  26. ZEMPLAR [Concomitant]
     Dates: start: 20060801
  27. EPOGEN [Concomitant]
     Dates: start: 20060801
  28. FERRLECIT [Concomitant]

REACTIONS (18)
  - ARTHRALGIA [None]
  - ERYTHEMA [None]
  - HYPOAESTHESIA [None]
  - JOINT CONTRACTURE [None]
  - JOINT RANGE OF MOTION DECREASED [None]
  - JOINT STIFFNESS [None]
  - LOCALISED OEDEMA [None]
  - MUSCULAR WEAKNESS [None]
  - MUSCULOSKELETAL STIFFNESS [None]
  - NEPHROGENIC SYSTEMIC FIBROSIS [None]
  - OEDEMA [None]
  - OEDEMA PERIPHERAL [None]
  - PAIN [None]
  - RASH MACULAR [None]
  - SKIN DISCOLOURATION [None]
  - SKIN HYPERTROPHY [None]
  - SKIN INDURATION [None]
  - SKIN TIGHTNESS [None]
